FAERS Safety Report 12728304 (Version 1)
Quarter: 2016Q3

REPORT INFORMATION
  Report Type: Spontaneous
  Country: US (occurrence: US)
  Receive Date: 20160907
  Receipt Date: 20160907
  Transmission Date: 20161109
  Serious: Yes (Death)
  Sender: FDA-Public Use
  Company Number: None

PATIENT
  Age: 63 Year
  Sex: Female

DRUGS (2)
  1. ELIQUIS [Suspect]
     Active Substance: APIXABAN
     Indication: HEART TRANSPLANT
     Route: 048
     Dates: start: 20160826
  2. NOVOLOG [Suspect]
     Active Substance: INSULIN ASPART
     Indication: HEART TRANSPLANT
     Dosage: OTHER
     Route: 058
     Dates: start: 20150517

REACTIONS (1)
  - Death [None]
